FAERS Safety Report 12048267 (Version 1)
Quarter: 2016Q1

REPORT INFORMATION
  Report Type: Spontaneous
  Country: US (occurrence: US)
  Receive Date: 20160208
  Receipt Date: 20160208
  Transmission Date: 20160526
  Serious: No
  Sender: FDA-Public Use
  Company Number: US-ABBVIE-15K-163-1494045-00

PATIENT
  Age: 27 Year
  Sex: Female
  Weight: 71.73 kg

DRUGS (9)
  1. OXCARBAZEPINE. [Concomitant]
     Active Substance: OXCARBAZEPINE
     Indication: AFFECTIVE DISORDER
  2. LORAZEPAM. [Concomitant]
     Active Substance: LORAZEPAM
     Indication: ANXIETY
  3. TRAZODONE [Concomitant]
     Active Substance: TRAZODONE HYDROCHLORIDE
     Indication: SLEEP DISORDER THERAPY
  4. HUMIRA [Suspect]
     Active Substance: ADALIMUMAB
     Indication: ANKYLOSING SPONDYLITIS
     Route: 058
     Dates: start: 2014
  5. HUMIRA [Suspect]
     Active Substance: ADALIMUMAB
     Indication: LEUKOCYTE ANTIGEN B-27 POSITIVE
  6. FOLIC ACID. [Concomitant]
     Active Substance: FOLIC ACID
     Indication: PRODUCT USED FOR UNKNOWN INDICATION
  7. MULTIVITAMIN [Concomitant]
     Active Substance: VITAMINS
     Indication: PRODUCT USED FOR UNKNOWN INDICATION
  8. HUMIRA [Suspect]
     Active Substance: ADALIMUMAB
     Indication: PRODUCT USE ISSUE
  9. FLUCONAZOL [Concomitant]
     Active Substance: FLUCONAZOLE
     Indication: PSORIASIS

REACTIONS (4)
  - Off label use [Unknown]
  - Wrong technique in product usage process [Not Recovered/Not Resolved]
  - Incorrect dose administered [Not Recovered/Not Resolved]
  - Mouth ulceration [Not Recovered/Not Resolved]

NARRATIVE: CASE EVENT DATE: 2014
